FAERS Safety Report 21691047 (Version 1)
Quarter: 2022Q4

REPORT INFORMATION
  Report Type: Spontaneous
  Country: US (occurrence: None)
  Receive Date: 20221207
  Receipt Date: 20221207
  Transmission Date: 20230113
  Serious: Yes (Other)
  Sender: FDA-Public Use
  Company Number: US-ROCHE-3231614

PATIENT
  Age: 4 Year

DRUGS (1)
  1. ROZLYTREK [Suspect]
     Active Substance: ENTRECTINIB
     Indication: Metastatic glioma
     Dosage: YES
     Route: 065

REACTIONS (4)
  - Seizure [Unknown]
  - Off label use [Unknown]
  - Off label use [Unknown]
  - Dysphagia [Not Recovered/Not Resolved]
